FAERS Safety Report 22299090 (Version 1)
Quarter: 2023Q2

REPORT INFORMATION
  Report Type: Spontaneous
  Country: US (occurrence: US)
  Receive Date: 20230509
  Receipt Date: 20230509
  Transmission Date: 20230722
  Serious: Yes (Hospitalization, Other)
  Sender: FDA-Public Use
  Company Number: US-AMGEN-USASP2023076416

PATIENT
  Age: 39 Year
  Sex: Male

DRUGS (1)
  1. NPLATE [Suspect]
     Active Substance: ROMIPLOSTIM
     Indication: Immune thrombocytopenia
     Dosage: UNK
     Route: 065

REACTIONS (6)
  - Mucosal haemorrhage [Recovered/Resolved]
  - Haematuria [Recovered/Resolved]
  - Mouth haemorrhage [Unknown]
  - Contusion [Unknown]
  - Abdominal pain [Recovered/Resolved]
  - Therapeutic response delayed [Unknown]
